FAERS Safety Report 4333040-1 (Version None)
Quarter: 2004Q2

REPORT INFORMATION
  Report Type: 
  Country: None (occurrence: None)
  Receive Date: 20040401
  Receipt Date: 20040312
  Transmission Date: 20050107
  Serious: Yes (Hospitalization)
  Sender: FDA-Public Use
  Company Number: 200410918GDS

PATIENT
  Age: 31 Year
  Sex: Female

DRUGS (3)
  1. NIFEDIPINE [Suspect]
     Indication: TOCOLYSIS
     Dosage: 20 MG, TID, ORAL
     Route: 048
  2. BETAMETHASONE [Suspect]
     Indication: TOCOLYSIS
  3. AMOXICILLIN [Concomitant]

REACTIONS (10)
  - COMPLICATIONS OF MATERNAL EXPOSURE TO THERAPEUTIC DRUGS [None]
  - CYANOSIS [None]
  - DYSPNOEA [None]
  - HEART RATE INCREASED [None]
  - HYPOXIA [None]
  - METABOLIC ACIDOSIS [None]
  - OEDEMA PERIPHERAL [None]
  - RESPIRATORY ALKALOSIS [None]
  - URINE KETONE BODY [None]
  - VENOUS PRESSURE JUGULAR INCREASED [None]
